FAERS Safety Report 6586403-8 (Version None)
Quarter: 2010Q1

REPORT INFORMATION
  Report Type: 
  Country: None (occurrence: None)
  Receive Date: 20100217
  Receipt Date: 20090305
  Transmission Date: 20100710
  Serious: Yes (Hospitalization)
  Sender: FDA-Public Use
  Company Number: US-ALLERGAN-0902955US

PATIENT
  Sex: Female

DRUGS (2)
  1. BOTOX [Suspect]
     Indication: MIGRAINE
     Dosage: UNK, UNK
     Dates: start: 20080101, end: 20080101
  2. BOTOX [Suspect]
     Dosage: 50 UNITS, UNK
     Dates: start: 20090101, end: 20090101

REACTIONS (1)
  - MYOCARDIAL INFARCTION [None]
